FAERS Safety Report 23744981 (Version 3)
Quarter: 2025Q1

REPORT INFORMATION
  Report Type: Spontaneous
  Country: DE (occurrence: DE)
  Receive Date: 20240415
  Receipt Date: 20250123
  Transmission Date: 20250408
  Serious: Yes (Other)
  Sender: BRISTOL-MYERS SQUIBB COMPANY
  Company Number: DE-BRISTOL-MYERS SQUIBB COMPANY-2024-038831

PATIENT
  Sex: Male

DRUGS (8)
  1. ELIQUIS [Suspect]
     Active Substance: APIXABAN
     Indication: Pulmonary embolism
     Route: 048
     Dates: start: 20231217
  2. ELIQUIS [Suspect]
     Active Substance: APIXABAN
     Indication: Deep vein thrombosis
     Route: 048
  3. ELIQUIS [Suspect]
     Active Substance: APIXABAN
     Route: 048
  4. CORTISONE [Concomitant]
     Active Substance: CORTISONE
     Indication: Pulmonary sarcoidosis
  5. CORTISONE [Concomitant]
     Active Substance: CORTISONE
     Indication: Cutaneous sarcoidosis
  6. VERAPAMIL [Concomitant]
     Active Substance: VERAPAMIL HYDROCHLORIDE
     Indication: Hypertension
  7. BECLOMETHASONE DIPROPIONATE\FORMOTEROL FUMARATE [Concomitant]
     Active Substance: BECLOMETHASONE DIPROPIONATE\FORMOTEROL FUMARATE
     Indication: Product used for unknown indication
  8. HEPARIN [Concomitant]
     Active Substance: HEPARIN SODIUM
     Indication: Product used for unknown indication
     Dates: start: 20240322

REACTIONS (10)
  - Bronchitis [Recovering/Resolving]
  - Heart rate increased [Unknown]
  - Hot flush [Unknown]
  - Alopecia [Unknown]
  - Prostatic disorder [Unknown]
  - Intestinal polyp [Unknown]
  - Skin infection [Unknown]
  - Irritable bowel syndrome [Unknown]
  - Injury [Unknown]
  - Haemorrhage [Unknown]

NARRATIVE: CASE EVENT DATE: 20240101
